FAERS Safety Report 14651747 (Version 1)
Quarter: 2018Q1

REPORT INFORMATION
  Report Type: Spontaneous
  Country: FR (occurrence: FR)
  Receive Date: 20180317
  Receipt Date: 20180317
  Transmission Date: 20180509
  Serious: Yes (Hospitalization)
  Sender: FDA-Public Use
  Company Number: FR-AUROBINDO-AUR-APL-2018-014141

PATIENT
  Age: 24 Year
  Sex: Female

DRUGS (4)
  1. FLAGYL [Suspect]
     Active Substance: METRONIDAZOLE\METRONIDAZOLE HYDROCHLORIDE
     Indication: SALPINGITIS
     Dosage: UNK
     Route: 041
     Dates: start: 20180216, end: 20180219
  2. OFLOCET [Suspect]
     Active Substance: OFLOXACIN
     Indication: SALPINGITIS
     Dosage: UNK
     Route: 041
     Dates: start: 20180216, end: 20180219
  3. ROCEPHINE [Suspect]
     Active Substance: CEFTRIAXONE SODIUM
     Indication: SALPINGITIS
     Dosage: 1 GRAM, ONCE A DAY
     Route: 041
     Dates: start: 20180216, end: 20180217
  4. CEFIXIME. [Suspect]
     Active Substance: CEFIXIME
     Indication: SALPINGITIS
     Dosage: UNK
     Route: 048
     Dates: start: 20180218, end: 20180219

REACTIONS (3)
  - Infusion site paraesthesia [Recovered/Resolved]
  - Agranulocytosis [Recovering/Resolving]
  - Diarrhoea [Recovered/Resolved]

NARRATIVE: CASE EVENT DATE: 20180218
